FAERS Safety Report 6054781-4 (Version None)
Quarter: 2009Q1

REPORT INFORMATION
  Report Type: 
  Country: None (occurrence: None)
  Receive Date: 20090128
  Receipt Date: 20090116
  Transmission Date: 20090719
  Serious: Yes (Other)
  Sender: FDA-Public Use
  Company Number: BR-PFIZER INC-2008089287

PATIENT

DRUGS (3)
  1. DEPO-PROVERA [Suspect]
     Indication: CONTRACEPTION
     Dosage: 150MG, FIRST INJECTION, EVERY 3 MONTHS
     Dates: start: 20050101, end: 20050101
  2. DEPO-PROVERA [Suspect]
     Dosage: 150MG, 1ST INJ 2ND CYCLE
     Dates: start: 20081016, end: 20081016
  3. DEPO-PROVERA [Suspect]
     Dosage: 150MG, 2ND INJ 2ND CYCLE
     Dates: start: 20090113, end: 20090113

REACTIONS (6)
  - AMENORRHOEA [None]
  - BLOOD GLUCOSE DECREASED [None]
  - DIZZINESS [None]
  - HEADACHE [None]
  - NAUSEA [None]
  - SYNCOPE [None]
